FAERS Safety Report 4964246-6 (Version None)
Quarter: 2006Q1

REPORT INFORMATION
  Report Type: 
  Country: None (occurrence: None)
  Receive Date: 20060331
  Receipt Date: 20060314
  Transmission Date: 20060701
  Serious: Yes (Hospitalization)
  Sender: FDA-Public Use
  Company Number: US200603003745

PATIENT
  Age: 6 Year
  Sex: Male
  Weight: 27.3 kg

DRUGS (1)
  1. STRATTERA [Suspect]
     Indication: ATTENTION DEFICIT/HYPERACTIVITY DISORDER
     Dosage: 18 MG

REACTIONS (3)
  - DIABETES MELLITUS INSULIN-DEPENDENT [None]
  - MOOD ALTERED [None]
  - URINARY INCONTINENCE [None]
